FAERS Safety Report 9133511 (Version 1)
Quarter: 2013Q1

REPORT INFORMATION
  Report Type: Spontaneous
  Country: US (occurrence: US)
  Receive Date: 20130124
  Receipt Date: 20130124
  Transmission Date: 20140127
  Serious: Yes (Other)
  Sender: FDA-Public Use
  Company Number: US-BRACCO-008051

PATIENT
  Age: 44 Year
  Sex: Female

DRUGS (2)
  1. MULTIHANCE [Suspect]
     Indication: NUCLEAR MAGNETIC RESONANCE IMAGING BRAIN
     Dates: start: 20120511, end: 20120511
  2. MULTIHANCE [Suspect]
     Indication: MIGRAINE
     Dates: start: 20120511, end: 20120511

REACTIONS (7)
  - Angioedema [Recovered/Resolved]
  - Dyspnoea [Recovered/Resolved]
  - Palpitations [Recovered/Resolved]
  - Hypoaesthesia oral [Recovered/Resolved]
  - Dysphonia [Recovered/Resolved]
  - Nasal congestion [Recovered/Resolved]
  - Urticaria [Recovered/Resolved]
